FAERS Safety Report 7424133-0 (Version None)
Quarter: 2011Q2

REPORT INFORMATION
  Report Type: 
  Country: None (occurrence: None)
  Receive Date: 20110419
  Receipt Date: 20110412
  Transmission Date: 20111010
  Serious: Yes (Other)
  Sender: FDA-Public Use
  Company Number: CHPA2011US05296

PATIENT
  Age: 86 Year
  Sex: Female
  Weight: 58.957 kg

DRUGS (5)
  1. DRUG THERAPY NOS [Concomitant]
     Indication: CARDIAC DISORDER
     Dosage: UNK, UNK
     Route: 048
  2. NITROGLYCERIN ^DUMEX^ [Concomitant]
     Indication: ANGINA PECTORIS
     Dosage: UNK, QD
  3. COUMADIN [Concomitant]
     Indication: ANTICOAGULANT THERAPY
     Dosage: UNK, UNK
     Route: 048
  4. ANTIHYPERTENSIVE DRUGS [Concomitant]
     Indication: HYPERTENSION
     Dosage: UNK, UNK
     Route: 048
  5. MYOFLEX ANALGESIC CREME [Suspect]
     Indication: ARTHRALGIA
     Dosage: UNK, ONCE DAILY PRN
     Route: 061
     Dates: start: 20101101, end: 20110413

REACTIONS (1)
  - PROTHROMBIN LEVEL INCREASED [None]
